FAERS Safety Report 24637562 (Version 1)
Quarter: 2024Q4

REPORT INFORMATION
  Report Type: Spontaneous
  Country: US (occurrence: US)
  Receive Date: 20241119
  Receipt Date: 20241119
  Transmission Date: 20250115
  Serious: No
  Sender: SEPTODONT
  Company Number: US-SEPTODONT-2024018560

PATIENT
  Age: 10 Year
  Sex: Male
  Weight: 31 kg

DRUGS (1)
  1. SEPTOCAINE [Suspect]
     Active Substance: ARTICAINE HYDROCHLORIDE\EPINEPHRINE BITARTRATE
     Indication: Dental local anaesthesia
     Dosage: 2 CARTRIDGES
     Route: 004
     Dates: start: 20240416, end: 20240416

REACTIONS (5)
  - Tremor [Unknown]
  - Dizziness [Recovering/Resolving]
  - Nystagmus [Unknown]
  - Bradycardia [Unknown]
  - Urticaria [Recovered/Resolved]

NARRATIVE: CASE EVENT DATE: 20240416
